FAERS Safety Report 4885953-X (Version None)
Quarter: 2006Q1

REPORT INFORMATION
  Report Type: 
  Country: None (occurrence: None)
  Receive Date: 20060118
  Receipt Date: 20060118
  Transmission Date: 20060701
  Serious: Yes (Hospitalization)
  Sender: FDA-Public Use
  Company Number: None

PATIENT
  Sex: Male
  Weight: 85 kg

DRUGS (5)
  1. ERLOTINIB [Suspect]
     Indication: RECTAL CANCER
     Dosage: 100MG QD ORAL
     Route: 048
     Dates: start: 20051221, end: 20060113
  2. FLUOROURACIL [Suspect]
     Indication: RECTAL CANCER
     Dosage: 320 IV BOLUS
     Route: 040
     Dates: start: 20051202, end: 20060104
  3. FLUOROURACIL [Suspect]
     Indication: RECTAL CANCER
     Dosage: 1920 CI IV
     Route: 042
     Dates: start: 20051221, end: 20060104
  4. OXALIPLATIN (65 MG/M2) D1 OF 14D CYCLE [Suspect]
     Indication: RECTAL CANCER
     Dosage: 65 IV
     Route: 042
     Dates: start: 20051202, end: 20060104
  5. AVASTIN [Suspect]
     Indication: RECTAL CANCER
     Dosage: 5MG IV
     Route: 042
     Dates: start: 20051221, end: 20060104

REACTIONS (3)
  - DRUG TOXICITY [None]
  - PURULENT DISCHARGE [None]
  - SUBCUTANEOUS ABSCESS [None]
